FAERS Safety Report 9661619 (Version 2)
Quarter: 2013Q4

REPORT INFORMATION
  Report Type: Spontaneous
  Country: US (occurrence: US)
  Receive Date: 20131031
  Receipt Date: 20131031
  Transmission Date: 20140711
  Serious: No
  Sender: FDA-Public Use
  Company Number: US-PURDUE-USA-2010-0053722

PATIENT
  Age: 47 Year
  Sex: Female
  Weight: 106.12 kg

DRUGS (2)
  1. OXYCONTIN (NDA 22-272) [Suspect]
     Indication: PAIN
     Dosage: 40 MG, QID
     Route: 048
     Dates: start: 201008, end: 201009
  2. OXYCONTIN (NDA 22-272) [Suspect]
     Dosage: 60 MG, QID
     Route: 048
     Dates: start: 20100923, end: 201010

REACTIONS (8)
  - Pain in extremity [Recovered/Resolved]
  - Pain [Unknown]
  - Musculoskeletal stiffness [Not Recovered/Not Resolved]
  - Headache [Recovered/Resolved]
  - Nausea [Recovered/Resolved]
  - Drug ineffective [Unknown]
  - Drug effect incomplete [Unknown]
  - Inadequate analgesia [Unknown]
